FAERS Safety Report 8615563-X (Version None)
Quarter: 2012Q3

REPORT INFORMATION
  Report Type: 
  Country: None (occurrence: None)
  Receive Date: 20120823
  Receipt Date: 20120820
  Transmission Date: 20120928
  Serious: Yes (Hospitalization)
  Sender: FDA-Public Use
  Company Number: PHHY2012TW071896

PATIENT
  Age: 56 Year
  Sex: Male

DRUGS (2)
  1. ACYCLOVIR [Concomitant]
     Indication: HERPES ZOSTER
     Route: 048
  2. FAMCICLOVIR [Suspect]
     Indication: HERPES ZOSTER
     Dosage: 250 MG, TID

REACTIONS (5)
  - PALPABLE PURPURA [None]
  - RASH MACULO-PAPULAR [None]
  - DERMATITIS BULLOUS [None]
  - LEUKOCYTOCLASTIC VASCULITIS [None]
  - LEUKOCYTOSIS [None]
